FAERS Safety Report 16989064 (Version 1)
Quarter: 2019Q4

REPORT INFORMATION
  Report Type: Spontaneous
  Country: US (occurrence: US)
  Receive Date: 20190919
  Receipt Date: 20190919
  Transmission Date: 20200122
  Serious: No
  Sender: FDA-Public Use
  Company Number: None

PATIENT
  Age: 54 Year
  Sex: Male

DRUGS (1)
  1. REPATHA [Suspect]
     Active Substance: EVOLOCUMAB
     Indication: HYPERLIPIDAEMIA
     Route: 058
     Dates: start: 201903

REACTIONS (4)
  - Product administration error [None]
  - Injection site pain [None]
  - Device malfunction [None]
  - Injection site extravasation [None]

NARRATIVE: CASE EVENT DATE: 20190911
